FAERS Safety Report 20058532 (Version 1)
Quarter: 2021Q4

REPORT INFORMATION
  Report Type: Report from Study
  Country: US (occurrence: US)
  Receive Date: 20211111
  Receipt Date: 20211111
  Transmission Date: 20220303
  Serious: Yes (Death)
  Sender: FDA-Public Use
  Company Number: US-ELI_LILLY_AND_COMPANY-US202111003662

PATIENT

DRUGS (1)
  1. CYRAMZA [Suspect]
     Active Substance: RAMUCIRUMAB
     Indication: Neoplasm malignant
     Dosage: UNK UNK, UNKNOWN
     Route: 065

REACTIONS (2)
  - Artery dissection [Fatal]
  - Aneurysm ruptured [Fatal]
